FAERS Safety Report 14764697 (Version 2)
Quarter: 2018Q2

REPORT INFORMATION
  Report Type: Spontaneous
  Country: IT (occurrence: IT)
  Receive Date: 20180416
  Receipt Date: 20180502
  Transmission Date: 20180711
  Serious: Yes (Life-Threatening)
  Sender: FDA-Public Use
  Company Number: IT-TEVA-2018-IT-880241

PATIENT
  Age: 79 Year
  Sex: Female

DRUGS (2)
  1. TRIAZOLAM. [Suspect]
     Active Substance: TRIAZOLAM
     Indication: DRUG ABUSE
     Route: 065
     Dates: start: 20171216, end: 20171216
  2. OXICODONE CLORIDRATO/PARACETAMOLO [Suspect]
     Active Substance: ACETAMINOPHEN\OXYCODONE HYDROCHLORIDE
     Indication: DRUG ABUSE
     Route: 048
     Dates: start: 20171216, end: 20171216

REACTIONS (2)
  - Coma [Unknown]
  - Hypothermia [Unknown]

NARRATIVE: CASE EVENT DATE: 20171216
